FAERS Safety Report 8775039 (Version 2)
Quarter: 2013Q3

REPORT INFORMATION
  Report Type: Spontaneous
  Country: ES (occurrence: ES)
  Receive Date: 20120910
  Receipt Date: 20130930
  Transmission Date: 20140515
  Serious: Yes (Other)
  Sender: FDA-Public Use
  Company Number: ES-009507513-1209ESP000366

PATIENT
  Age: 5 Year
  Sex: Male

DRUGS (1)
  1. BRIDION [Suspect]
     Indication: NEUROMUSCULAR BLOCKADE REVERSAL
     Dosage: 2 MG/KG, ONCE
     Route: 042
     Dates: start: 20120820, end: 20120820

REACTIONS (3)
  - Musculoskeletal stiffness [Recovered/Resolved]
  - Hypoventilation [Recovered/Resolved]
  - Muscle spasms [Recovered/Resolved]
